FAERS Safety Report 5961623-1 (Version None)
Quarter: 2008Q4

REPORT INFORMATION
  Report Type: 
  Country: None (occurrence: None)
  Receive Date: 20081121
  Receipt Date: 20081110
  Transmission Date: 20090506
  Serious: Yes (Other)
  Sender: FDA-Public Use
  Company Number: IN-WATSON-2008-06646

PATIENT
  Sex: Male

DRUGS (2)
  1. PREDNISOLONE ACETATE [Suspect]
     Indication: LEPROSY
     Dosage: 40 - 60 MG, DAILY
  2. THALIDOMIDE [Suspect]
     Indication: LEPROSY
     Dosage: 50-300 MG, DAILY

REACTIONS (2)
  - DEEP VEIN THROMBOSIS [None]
  - DRUG INTERACTION [None]
